FAERS Safety Report 8001988-2 (Version None)
Quarter: 2011Q4

REPORT INFORMATION
  Report Type: 
  Country: None (occurrence: None)
  Receive Date: 20111222
  Receipt Date: 20111220
  Transmission Date: 20120403
  Serious: Yes (Other)
  Sender: FDA-Public Use
  Company Number: US-ROCHE-683566

PATIENT
  Sex: Male
  Weight: 93 kg

DRUGS (1)
  1. ACCUTANE [Suspect]
     Indication: ACNE
     Route: 065
     Dates: start: 19980113, end: 19980605

REACTIONS (8)
  - SKIN PAPILLOMA [None]
  - CROHN'S DISEASE [None]
  - HAEMATURIA [None]
  - COLITIS ULCERATIVE [None]
  - GASTROINTESTINAL HAEMORRHAGE [None]
  - INFLAMMATORY BOWEL DISEASE [None]
  - DEPRESSION [None]
  - BLOOD BILIRUBIN INCREASED [None]
